FAERS Safety Report 5887191-0 (Version None)
Quarter: 2008Q3

REPORT INFORMATION
  Report Type: 
  Country: None (occurrence: None)
  Receive Date: 20080917
  Receipt Date: 20080911
  Transmission Date: 20090109
  Serious: Yes (Death)
  Sender: FDA-Public Use
  Company Number: JP-PFIZER INC-2008076501

PATIENT
  Age: 78 Year
  Sex: Female

DRUGS (7)
  1. CELECOX [Suspect]
     Indication: RHEUMATOID ARTHRITIS
     Dosage: DAILY DOSE:100MG
     Route: 048
     Dates: start: 20080401, end: 20080609
  2. PREDNISOLONE [Concomitant]
     Route: 048
  3. NITOROL R [Concomitant]
     Route: 048
  4. FERROMIA [Concomitant]
     Route: 048
  5. MENATETRENONE [Concomitant]
     Route: 048
  6. AMLODIPINE BESYLATE [Concomitant]
     Route: 048
  7. LANSOPRAZOLE [Concomitant]
     Indication: PROPHYLAXIS
     Route: 048

REACTIONS (1)
  - DEATH [None]
